FAERS Safety Report 25400554 (Version 2)
Quarter: 2025Q3

REPORT INFORMATION
  Report Type: Report from Study
  Country: CA (occurrence: CA)
  Receive Date: 20250605
  Receipt Date: 20250718
  Transmission Date: 20251021
  Serious: Yes (Other)
  Sender: CSL BEHRING
  Company Number: CA-BEH-2025197452

PATIENT
  Age: 78 Year
  Sex: Male
  Weight: 73 kg

DRUGS (16)
  1. HAEGARDA [Suspect]
     Active Substance: HUMAN C1-ESTERASE INHIBITOR
     Indication: Angioedema
     Dosage: 4000IU, BIW
     Route: 058
     Dates: start: 20250122
  2. HAEGARDA [Suspect]
     Active Substance: HUMAN C1-ESTERASE INHIBITOR
     Indication: Prophylaxis
  3. BERINERT [Suspect]
     Active Substance: HUMAN C1-ESTERASE INHIBITOR
     Indication: Angioedema
     Dosage: 4000 IU, BIW
     Route: 058
     Dates: start: 20250122
  4. BERINERT [Suspect]
     Active Substance: HUMAN C1-ESTERASE INHIBITOR
     Indication: Prophylaxis
  5. BERINERT [Suspect]
     Active Substance: HUMAN C1-ESTERASE INHIBITOR
     Indication: Angioedema
     Route: 042
     Dates: start: 20241222
  6. BERINERT [Suspect]
     Active Substance: HUMAN C1-ESTERASE INHIBITOR
     Indication: Angioedema
     Route: 042
     Dates: start: 20241222
  7. NIFEDIPINE [Concomitant]
     Active Substance: NIFEDIPINE
  8. SIMVASTATIN [Concomitant]
     Active Substance: SIMVASTATIN
  9. CETIRIZINE [Concomitant]
     Active Substance: CETIRIZINE HYDROCHLORIDE
  10. TYLENOL [Concomitant]
     Active Substance: ACETAMINOPHEN
  11. TYLENOL PM [Concomitant]
     Active Substance: ACETAMINOPHEN\DIPHENHYDRAMINE
  12. BENADRYL [Concomitant]
     Active Substance: DIPHENHYDRAMINE HYDROCHLORIDE
  13. CLONAZEPAM [Concomitant]
     Active Substance: CLONAZEPAM
  14. MELATONIN [Concomitant]
     Active Substance: MELATONIN
  15. BERINERT [Concomitant]
     Active Substance: HUMAN C1-ESTERASE INHIBITOR
     Route: 065
  16. BERINERT [Concomitant]
     Active Substance: HUMAN C1-ESTERASE INHIBITOR
     Route: 065

REACTIONS (9)
  - Hereditary angioedema [Unknown]
  - Haemorrhage [Unknown]
  - Therapeutic product effect decreased [Unknown]
  - Hereditary angioedema [Unknown]
  - Off label use [Unknown]
  - Malaise [Unknown]
  - Restlessness [Unknown]
  - Anxiety [Unknown]
  - Swollen tongue [Unknown]

NARRATIVE: CASE EVENT DATE: 20250122
